FAERS Safety Report 9159909 (Version 2)
Quarter: 2013Q2

REPORT INFORMATION
  Report Type: Spontaneous
  Country: BR (occurrence: BR)
  Receive Date: 20130313
  Receipt Date: 20130415
  Transmission Date: 20140414
  Serious: Yes (Hospitalization, Other)
  Sender: FDA-Public Use
  Company Number: PHHY2013BR023234

PATIENT
  Age: 12 Year
  Sex: Male

DRUGS (2)
  1. RITALINA [Suspect]
     Indication: PSYCHOMOTOR HYPERACTIVITY
     Dosage: 3 DF, QD
     Route: 048
     Dates: end: 20130305
  2. RITALINA [Suspect]
     Dosage: 1 DF, QD
     Route: 048
     Dates: start: 20130307

REACTIONS (7)
  - Muscle spasms [Recovering/Resolving]
  - Trismus [Unknown]
  - Viral infection [Recovered/Resolved]
  - Lip swelling [Recovering/Resolving]
  - Convulsion [Recovering/Resolving]
  - Dyspnoea [Recovering/Resolving]
  - Weight decreased [Recovering/Resolving]
